APPROVED DRUG PRODUCT: ELIXOPHYLLIN
Active Ingredient: THEOPHYLLINE
Strength: 80MG/15ML
Dosage Form/Route: SOLUTION, ELIXIR;ORAL
Application: A085186 | Product #001
Applicant: SOLIS PHARMACEUTICALS INC
Approved: Approved Prior to Jan 1, 1982 | RLD: Yes | RS: No | Type: DISCN